FAERS Safety Report 17827135 (Version 1)
Quarter: 2020Q2

REPORT INFORMATION
  Report Type: Spontaneous
  Country: FR (occurrence: FR)
  Receive Date: 20200527
  Receipt Date: 20200527
  Transmission Date: 20200714
  Serious: Yes (Other)
  Sender: FDA-Public Use
  Company Number: FR-AUROBINDO-AUR-APL-2020-025830

PATIENT
  Age: 19 Year
  Sex: Male
  Weight: 60 kg

DRUGS (4)
  1. CODEINE [Suspect]
     Active Substance: CODEINE
     Indication: SUBSTANCE USE
     Dosage: 75 MILLILITER, ONCE A DAY
     Route: 048
     Dates: start: 20200507, end: 20200507
  2. PHENERGAN [Suspect]
     Active Substance: PROMETHAZINE HYDROCHLORIDE
     Indication: SUBSTANCE USE
     Dosage: 10 DOSAGE FORM, DAILY
     Route: 048
     Dates: start: 20200507, end: 20200507
  3. CANNABIS SATIVA [Suspect]
     Active Substance: CANNABIS SATIVA FLOWERING TOP
     Indication: SUBSTANCE USE
     Dosage: 3 DOSAGE FORM, DAILY
     Route: 055
     Dates: start: 20200507, end: 20200507
  4. ALPRAZOLAM. [Suspect]
     Active Substance: ALPRAZOLAM
     Indication: SUBSTANCE USE
     Dosage: 2 MILLIGRAM, ONCE A DAY
     Route: 048
     Dates: start: 20200507, end: 20200507

REACTIONS (2)
  - Altered state of consciousness [Recovered/Resolved]
  - Drug abuse [Recovering/Resolving]

NARRATIVE: CASE EVENT DATE: 20200507
